FAERS Safety Report 24005091 (Version 1)
Quarter: 2024Q2

REPORT INFORMATION
  Report Type: Spontaneous
  Country: DE (occurrence: DE)
  Receive Date: 20240624
  Receipt Date: 20240624
  Transmission Date: 20240716
  Serious: Yes (Hospitalization)
  Sender: FDA-Public Use
  Company Number: DE-002147023-NVSC2024DE128186

PATIENT
  Age: 65 Year
  Sex: Female

DRUGS (3)
  1. NILOTINIB [Suspect]
     Active Substance: NILOTINIB
     Indication: Chronic myeloid leukaemia
     Dosage: 300 MG, BID
     Route: 065
     Dates: start: 201512, end: 201902
  2. NILOTINIB [Suspect]
     Active Substance: NILOTINIB
     Dosage: 300 MG, BID
     Route: 065
     Dates: start: 201905, end: 202111
  3. ATORVASTATIN [Concomitant]
     Active Substance: ATORVASTATIN
     Indication: Product used for unknown indication
     Dosage: 20 MG (0?0?0?1)
     Route: 065

REACTIONS (11)
  - Palpitations [Unknown]
  - Dyspnoea [Unknown]
  - Atrial fibrillation [Unknown]
  - Cardiac failure [Unknown]
  - Coronary artery disease [Unknown]
  - Chest pain [Unknown]
  - Dry skin [Unknown]
  - Rash [Unknown]
  - Myalgia [Unknown]
  - Hypercholesterolaemia [Unknown]
  - Spinal pain [Unknown]

NARRATIVE: CASE EVENT DATE: 20190201
